FAERS Safety Report 9929369 (Version 3)
Quarter: 2014Q2

REPORT INFORMATION
  Report Type: Spontaneous
  Country: US (occurrence: US)
  Receive Date: 20140227
  Receipt Date: 20140414
  Transmission Date: 20141212
  Serious: Yes (Death, Other)
  Sender: FDA-Public Use
  Company Number: US-CELGENEUS-163-POMAL-14012034

PATIENT
  Age: 78 Year
  Sex: Female

DRUGS (1)
  1. POMALYST [Suspect]
     Indication: PLASMA CELL MYELOMA
     Dosage: 2 MILLIGRAM
     Route: 048
     Dates: start: 20131219, end: 20140124

REACTIONS (3)
  - Plasma cell myeloma [Fatal]
  - Full blood count decreased [Not Recovered/Not Resolved]
  - Fatigue [Not Recovered/Not Resolved]
